FAERS Safety Report 8017694 (Version 2)
Quarter: 2012Q4

REPORT INFORMATION
  Report Type: 
  Country: MX (occurrence: MX)
  Receive Date: 20110630
  Receipt Date: 20120903
  Transmission Date: 20130627
  Serious: Yes (Death, Hospitalization)
  Sender: FDA-Public Use
  Company Number: PHHY2011MX55202

PATIENT
  Age: 87 Year
  Sex: Female

DRUGS (1)
  1. ACLASTA [Suspect]
     Indication: OSTEOPOROSIS
     Dosage: 5 mg/100 ml yearly
     Route: 042
     Dates: start: 201102

REACTIONS (6)
  - Death [Fatal]
  - Myasthenia gravis [Not Recovered/Not Resolved]
  - Hypophagia [Unknown]
  - Movement disorder [Unknown]
  - Dyspnoea [Not Recovered/Not Resolved]
  - Increased bronchial secretion [Unknown]
